FAERS Safety Report 5721369-1 (Version None)
Quarter: 2008Q2

REPORT INFORMATION
  Report Type: 
  Country: None (occurrence: None)
  Receive Date: 20080429
  Receipt Date: 20080424
  Transmission Date: 20081010
  Serious: Yes (Other)
  Sender: FDA-Public Use
  Company Number: PHBS2007BE14978

PATIENT

DRUGS (3)
  1. ZOMETA [Suspect]
     Indication: METASTASES TO BONE
     Dosage: UNK, UNK
     Dates: start: 20050101, end: 20070101
  2. RADIOTHERAPY [Concomitant]
  3. ANTINEOPLASTIC AGENTS [Concomitant]
     Indication: BONE NEOPLASM MALIGNANT

REACTIONS (5)
  - ORAL CAVITY FISTULA [None]
  - OSTEONECROSIS [None]
  - PAIN IN JAW [None]
  - PURULENT DISCHARGE [None]
  - TOOTH EXTRACTION [None]
